FAERS Safety Report 7238337-3 (Version None)
Quarter: 2011Q1

REPORT INFORMATION
  Report Type: 
  Country: None (occurrence: None)
  Receive Date: 20110118
  Receipt Date: 20110106
  Transmission Date: 20110831
  Serious: Yes (Hospitalization)
  Sender: FDA-Public Use
  Company Number: 795416

PATIENT
  Age: 44 Year
  Sex: Male

DRUGS (4)
  1. HEPARIN SODIUM [Suspect]
     Dosage: 5000 UNITS, INTRAVENOUS BOLUS
     Route: 040
  2. ASPIRIN [Concomitant]
  3. LOVENOX [Concomitant]
  4. HEPARIN SODIUM [Suspect]
     Dosage: INTRAVENOUS DRIP
     Route: 041

REACTIONS (4)
  - HEPARIN-INDUCED THROMBOCYTOPENIA [None]
  - MUSCLE NECROSIS [None]
  - THROMBOPHLEBITIS SUPERFICIAL [None]
  - TRANSPLANT FAILURE [None]
